FAERS Safety Report 21997521 (Version 2)
Quarter: 2023Q1

REPORT INFORMATION
  Report Type: Spontaneous
  Country: CA (occurrence: CA)
  Receive Date: 20230216
  Receipt Date: 20230225
  Transmission Date: 20230418
  Serious: Yes (Other)
  Sender: FDA-Public Use
  Company Number: CA-CELLTRION INC.-2023CA000552

PATIENT

DRUGS (17)
  1. INFLECTRA [Suspect]
     Active Substance: INFLIXIMAB-DYYB
     Indication: Colitis ulcerative
     Dosage: 5 MG/KG,W0, W2, W6 AND EVERY 8 WEEKS
     Route: 042
     Dates: start: 20221220
  2. INFLECTRA [Suspect]
     Active Substance: INFLIXIMAB-DYYB
     Dosage: 5 MG/KG,W0, W2, W6 AND EVERY 8 WEEKS
     Route: 042
     Dates: start: 20221220
  3. INFLECTRA [Suspect]
     Active Substance: INFLIXIMAB-DYYB
     Dosage: 5 MG/KG,W0, W2, W6 AND EVERY 8 WEEKS
     Route: 042
     Dates: start: 20230104
  4. INFLECTRA [Suspect]
     Active Substance: INFLIXIMAB-DYYB
     Dosage: 465 MGW6,((5 MG/KG) W0,W2,W6 AND THEN Q8 WEEKS)
     Route: 042
     Dates: start: 20230215
  5. ADMELOG [Concomitant]
     Active Substance: INSULIN LISPRO
     Dosage: 1 DF
  6. CAL + D [Concomitant]
     Dosage: 1 DF
  7. CITALOPRAM [Concomitant]
     Active Substance: CITALOPRAM HYDROBROMIDE
     Dosage: 1 DF
  8. HYDROCORTISONE [Concomitant]
     Active Substance: HYDROCORTISONE
     Dosage: 1 DF
  9. DOXYLAMINE [Concomitant]
     Active Substance: DOXYLAMINE
     Dosage: 1 DF
  10. ENTOCORT [Concomitant]
     Active Substance: BUDESONIDE
     Dosage: 1 DF (ENTOCORT LAVEMENT  )
  11. FERROUS SULFATE [Concomitant]
     Active Substance: FERROUS SULFATE
     Dosage: 1 DF
  12. HUMULIN N [Concomitant]
     Active Substance: INSULIN HUMAN
     Dosage: 1 DF
  13. PREDNISONE [Concomitant]
     Active Substance: PREDNISONE
     Dosage: 1 DF
  14. PANTOPRAZOLE SODIUM [Concomitant]
     Active Substance: PANTOPRAZOLE SODIUM
     Dosage: 1 DF
  15. PROCTOL [Concomitant]
     Dosage: 1 DF
  16. MESALAMINE [Concomitant]
     Active Substance: MESALAMINE
     Dosage: 1 DF
  17. TYLENOL [Concomitant]
     Active Substance: ACETAMINOPHEN
     Dosage: 1 DF

REACTIONS (8)
  - Sepsis [Recovered/Resolved]
  - Urinary tract infection [Not Recovered/Not Resolved]
  - Headache [Recovered/Resolved]
  - Maternal exposure during pregnancy [Unknown]
  - Retained placenta or membranes [Unknown]
  - Chills [Not Recovered/Not Resolved]
  - Pyrexia [Not Recovered/Not Resolved]
  - Weight decreased [Not Recovered/Not Resolved]

NARRATIVE: CASE EVENT DATE: 20221220
